FAERS Safety Report 22921365 (Version 2)
Quarter: 2024Q3

REPORT INFORMATION
  Report Type: Spontaneous
  Country: US (occurrence: None)
  Receive Date: 20230908
  Receipt Date: 20240906
  Transmission Date: 20241017
  Serious: No
  Sender: DOMPE FARMACEUTICI
  Company Number: US-FARMAPROD-202306-1650

PATIENT
  Sex: Female

DRUGS (4)
  1. OXERVATE [Suspect]
     Active Substance: CENEGERMIN-BKBJ
     Indication: Neurotrophic keratopathy
     Route: 047
     Dates: start: 20230531
  2. OXERVATE [Suspect]
     Active Substance: CENEGERMIN-BKBJ
  3. ZOMIG [Concomitant]
     Active Substance: ZOLMITRIPTAN
  4. BACLOFEN [Concomitant]
     Active Substance: BACLOFEN

REACTIONS (5)
  - Intentional product misuse [Unknown]
  - Eye pain [Recovering/Resolving]
  - Photophobia [Unknown]
  - Visual acuity reduced [Unknown]
  - Eye irritation [Unknown]
